FAERS Safety Report 22033288 (Version 1)
Quarter: 2023Q1

REPORT INFORMATION
  Report Type: Spontaneous
  Country: US (occurrence: None)
  Receive Date: 20230222
  Receipt Date: 20230222
  Transmission Date: 20230417
  Serious: Yes (Disabling)
  Sender: FDA-Public Use
  Company Number: None

PATIENT
  Age: 54 Year
  Sex: Female
  Weight: 64.35 kg

DRUGS (1)
  1. ARTNATURALS HAND SANITIZER [Suspect]
     Active Substance: ALCOHOL
     Route: 061
     Dates: start: 20220531, end: 20230215

REACTIONS (3)
  - Recalled product administered [None]
  - Chronic lymphocytic leukaemia [None]
  - Product contamination [None]

NARRATIVE: CASE EVENT DATE: 20220831
